FAERS Safety Report 5285628-1 (Version None)
Quarter: 2007Q1

REPORT INFORMATION
  Report Type: 
  Country: None (occurrence: None)
  Receive Date: 20070116
  Receipt Date: 20061130
  Transmission Date: 20070707
  Serious: No
  Sender: FDA-Public Use
  Company Number: 2006SP004214

PATIENT
  Age: 64 Year
  Sex: Female
  Weight: 61.2356 kg

DRUGS (4)
  1. LUNESTA [Suspect]
     Indication: INSOMNIA
     Dosage: SEE IMAGE
     Route: 048
     Dates: start: 20060101, end: 20061001
  2. LUNESTA [Suspect]
     Indication: INSOMNIA
     Dosage: SEE IMAGE
     Route: 048
     Dates: start: 20061001
  3. CLONAZEPAM [Suspect]
     Indication: INSOMNIA
     Dosage: HS
     Dates: start: 20060101, end: 20061001
  4. DARVOCET-N 100 [Concomitant]

REACTIONS (3)
  - ABNORMAL DREAMS [None]
  - FATIGUE [None]
  - INITIAL INSOMNIA [None]
